FAERS Safety Report 21593180 (Version 1)
Quarter: 2022Q4

REPORT INFORMATION
  Report Type: Spontaneous
  Country: US (occurrence: None)
  Receive Date: 20221111
  Receipt Date: 20221111
  Transmission Date: 20230113
  Serious: Yes (Other)
  Sender: FDA-Public Use
  Company Number: None

PATIENT
  Sex: Male

DRUGS (1)
  1. KESIMPTA [Suspect]
     Active Substance: OFATUMUMAB
     Dosage: OTHER FREQUENCY : WEEKS 0, 1;? 20MG AT WEEKS 0, 1, 11 OTHER    I SUBCUTANEOUS?
     Route: 058
     Dates: start: 202210

REACTIONS (3)
  - Muscle spasms [None]
  - Pyrexia [None]
  - Cold sweat [None]
